FAERS Safety Report 7392815 (Version 6)
Quarter: 2014Q1

REPORT INFORMATION
  Report Type: Report from Study
  Country: JP (occurrence: JP)
  Receive Date: 20100519
  Receipt Date: 20140306
  Transmission Date: 20141002
  Serious: Yes (Death, Hospitalization)
  Sender: FDA-Public Use
  Company Number: JP-PFIZER INC-2010059502

PATIENT
  Age: 56 Year
  Sex: Female
  Weight: 67 kg

DRUGS (17)
  1. SUNITINIB MALATE [Suspect]
     Indication: RENAL CELL CARCINOMA
     Dosage: 50 MG, 1X/DAY
     Route: 048
     Dates: start: 20091023, end: 20091119
  2. OXYCONTIN [Concomitant]
     Dosage: 10 MG, 2X/DAY
     Route: 048
     Dates: end: 20091213
  3. KALIMATE [Concomitant]
     Dosage: 5 G, 3X/DAY
     Route: 048
     Dates: start: 20091102, end: 20091110
  4. MAGNESIUM OXIDE [Concomitant]
     Dosage: 1 G, 3X/DAY
     Route: 048
     Dates: end: 20091213
  5. HACHIAZULE [Concomitant]
     Dosage: UNK
     Route: 049
     Dates: start: 20091105, end: 20091213
  6. PASTARON [Concomitant]
     Dosage: UNK
     Route: 062
     Dates: start: 20091027, end: 20091215
  7. THYRADIN [Concomitant]
     Dosage: 25 UG, 1X/DAY
     Route: 048
     Dates: start: 20091106, end: 20091112
  8. THYRADIN [Concomitant]
     Dosage: 50 UG, 1X/DAY
     Route: 048
     Dates: start: 20091113, end: 20091119
  9. THYRADIN [Concomitant]
     Dosage: 100 UG, 1X/DAY
     Route: 048
     Dates: start: 20091120, end: 20091215
  10. DIOVANE [Concomitant]
     Indication: HYPERTENSION
     Dosage: 80 MG, 1X/DAY
     Route: 048
     Dates: start: 20091106, end: 20091128
  11. ANTEBATE [Concomitant]
     Dosage: UNK
     Route: 062
     Dates: start: 20091111, end: 20091215
  12. ALBUMIN BOVINE [Concomitant]
     Dosage: 50 ML, 1X/DAY
     Route: 042
     Dates: start: 20091110, end: 20091112
  13. HEPARIN SODIUM [Concomitant]
     Indication: CATHETER MANAGEMENT
     Dosage: 10 ML, 1X/DAY
     Route: 042
     Dates: start: 20091110, end: 20091111
  14. LASIX [Concomitant]
     Dosage: 40 MG, 1X/DAY
     Route: 042
     Dates: start: 20091130, end: 20091204
  15. GASTER [Concomitant]
     Dosage: 10 MG, 2X/DAY
     Route: 048
     Dates: start: 20091205, end: 20091213
  16. NOVAMIN [Concomitant]
     Dosage: UNK MG, 1X/DAY
     Route: 042
     Dates: end: 20091029
  17. FLORID [Concomitant]
     Dosage: 1 DF, 4X/DAY
     Route: 048
     Dates: end: 20091025

REACTIONS (7)
  - Acute respiratory failure [Fatal]
  - Renal failure acute [Recovering/Resolving]
  - Pleural effusion [Not Recovered/Not Resolved]
  - Hypotension [Not Recovered/Not Resolved]
  - Cachexia [Not Recovered/Not Resolved]
  - Acidosis [Not Recovered/Not Resolved]
  - Hyperkalaemia [Recovering/Resolving]
